FAERS Safety Report 18484717 (Version 1)
Quarter: 2020Q4

REPORT INFORMATION
  Report Type: Spontaneous
  Country: JP (occurrence: JP)
  Receive Date: 20201110
  Receipt Date: 20201110
  Transmission Date: 20210114
  Serious: Yes (Other)
  Sender: FDA-Public Use
  Company Number: JP-GLAXOSMITHKLINE-JP2020JPN219487

PATIENT
  Sex: Female

DRUGS (1)
  1. DUAC GEL [Suspect]
     Active Substance: BENZOYL PEROXIDE\CLINDAMYCIN PHOSPHATE
     Dosage: UNK
     Route: 061
     Dates: start: 2018, end: 201903

REACTIONS (3)
  - Colitis ulcerative [Unknown]
  - Diarrhoea [Unknown]
  - Pyrexia [Unknown]
